FAERS Safety Report 21093831 (Version 1)
Quarter: 2022Q3

REPORT INFORMATION
  Report Type: Other
  Country: None (occurrence: TR)
  Receive Date: 20220718
  Receipt Date: 20220718
  Transmission Date: 20221027
  Serious: Yes (Other)
  Sender: FDA-Public Use
  Company Number: TR-Ajanta Pharma USA Inc.-2130967

PATIENT
  Age: 42 Year
  Sex: Male

DRUGS (1)
  1. SOLIFENACIN SUCCINATE [Suspect]
     Active Substance: SOLIFENACIN SUCCINATE
     Indication: Hypertonic bladder

REACTIONS (1)
  - Acute psychosis [Recovered/Resolved]
